FAERS Safety Report 25365840 (Version 1)
Quarter: 2025Q2

REPORT INFORMATION
  Report Type: Spontaneous
  Country: EG (occurrence: EG)
  Receive Date: 20250528
  Receipt Date: 20250528
  Transmission Date: 20250716
  Serious: Yes (Other)
  Sender: NOVO NORDISK
  Company Number: EG-NOVOPROD-1433634

PATIENT
  Sex: Female

DRUGS (10)
  1. INSULIN HUMAN [Suspect]
     Active Substance: INSULIN HUMAN
     Indication: Type 2 diabetes mellitus
     Dosage: 60 IU, QD(40U MORNING AND 20U AT NIGHT)(MORE THAN TWO YEARS)
  2. EMPACOZA PLUS [Concomitant]
     Indication: Type 2 diabetes mellitus
     Route: 048
  3. NEBIVOLOL HYDROCHLORIDE [Concomitant]
     Active Substance: NEBIVOLOL HYDROCHLORIDE
     Indication: Hypertension
     Route: 048
  4. CHOLEROSE PLUS [Concomitant]
     Indication: Hypercholesterolaemia
     Route: 048
  5. VASTAREL [Concomitant]
     Active Substance: TRIMETAZIDINE DIHYDROCHLORIDE
     Indication: Prophylaxis
     Route: 048
  6. ITOPRIDE [Concomitant]
     Active Substance: ITOPRIDE
     Indication: Gastrointestinal disorder
     Route: 048
  7. TORSEMIDE [Concomitant]
     Active Substance: TORSEMIDE
     Indication: Diuretic therapy
     Route: 048
  8. DIGEST EZE [Concomitant]
     Indication: Gastrointestinal disorder
     Route: 048
  9. AMBEZIM [Concomitant]
     Indication: Inflammation
     Route: 048
  10. VITAMIN B [Concomitant]
     Active Substance: VITAMIN B
     Indication: Type 2 diabetes mellitus

REACTIONS (6)
  - Catheterisation cardiac [Unknown]
  - Coronary arterial stent insertion [Unknown]
  - Lymphadenopathy [Unknown]
  - Glycosylated haemoglobin increased [Unknown]
  - Hyperglycaemia [Unknown]
  - Off label use [Unknown]
